FAERS Safety Report 7334422-6 (Version None)
Quarter: 2011Q1

REPORT INFORMATION
  Report Type: 
  Country: None (occurrence: None)
  Receive Date: 20110307
  Receipt Date: 20110224
  Transmission Date: 20110831
  Serious: Yes (Other)
  Sender: FDA-Public Use
  Company Number: PHHY2011US16132

PATIENT
  Sex: Female

DRUGS (5)
  1. MOTRIN [Concomitant]
  2. LEVOTHYROXINE SODIUM [Concomitant]
  3. GILENYA [Suspect]
     Indication: MULTIPLE SCLEROSIS
     Dosage: 0.5 MG, QD
     Route: 048
     Dates: start: 20110202
  4. NEXIUM [Concomitant]
  5. VITAMIN E [Concomitant]

REACTIONS (6)
  - HYPOTENSION [None]
  - FATIGUE [None]
  - HEART RATE DECREASED [None]
  - DIZZINESS [None]
  - IRRITABILITY [None]
  - PARAESTHESIA [None]
